FAERS Safety Report 12368576 (Version 3)
Quarter: 2016Q2

REPORT INFORMATION
  Report Type: Report from Study
  Country: US (occurrence: US)
  Receive Date: 20160513
  Receipt Date: 20160629
  Transmission Date: 20160815
  Serious: Yes (Hospitalization, Other)
  Sender: FDA-Public Use
  Company Number: US-GILEAD-2016-0210603

PATIENT
  Age: 56 Year
  Sex: Female

DRUGS (4)
  1. LISINOPRIL. [Concomitant]
     Active Substance: LISINOPRIL
     Indication: HYPERTENSION
     Dosage: 5 MG, QD
     Route: 048
  2. LEDIPASVIR/SOFOSBUVIR [Suspect]
     Active Substance: LEDIPASVIR\SOFOSBUVIR
     Indication: CHRONIC HEPATITIS C
     Dosage: 1 DF, QD
     Route: 048
     Dates: start: 20160331
  3. GLIMEPIRIDE. [Concomitant]
     Active Substance: GLIMEPIRIDE
     Indication: TYPE 2 DIABETES MELLITUS
     Dosage: 2 MG, QD
     Route: 048
  4. CAFFEINE. [Concomitant]
     Active Substance: CAFFEINE

REACTIONS (15)
  - Fatigue [Unknown]
  - Weight increased [Unknown]
  - Emotional disorder [Unknown]
  - Abdominal distension [Not Recovered/Not Resolved]
  - Upper respiratory tract infection [Unknown]
  - Asthenia [Unknown]
  - Irritability [Unknown]
  - Urinary tract infection [Unknown]
  - Hospitalisation [Not Recovered/Not Resolved]
  - Insomnia [Unknown]
  - Nasopharyngitis [Not Recovered/Not Resolved]
  - Cough [Not Recovered/Not Resolved]
  - Eye infection [Unknown]
  - Blood glucose increased [Unknown]
  - Sputum discoloured [Not Recovered/Not Resolved]

NARRATIVE: CASE EVENT DATE: 2016
